FAERS Safety Report 4578041-3 (Version None)
Quarter: 2005Q1

REPORT INFORMATION
  Report Type: 
  Country: None (occurrence: None)
  Receive Date: 20050209
  Receipt Date: 20050127
  Transmission Date: 20050727
  Serious: Yes (Hospitalization)
  Sender: FDA-Public Use
  Company Number: 2005020581

PATIENT
  Age: 39 Year
  Sex: Female

DRUGS (3)
  1. ZELDOX [Suspect]
     Indication: PSYCHOTIC DISORDER
     Dosage: 40 MG ORAL
     Route: 048
     Dates: start: 20041103, end: 20050119
  2. MIRTAZAPINE [Concomitant]
  3. LORMETAZEPAM [Concomitant]

REACTIONS (1)
  - TARDIVE DYSKINESIA [None]
